FAERS Safety Report 8200810-9 (Version None)
Quarter: 2012Q1

REPORT INFORMATION
  Report Type: 
  Country: None (occurrence: None)
  Receive Date: 20120312
  Receipt Date: 20120302
  Transmission Date: 20120608
  Serious: Yes (Other)
  Sender: FDA-Public Use
  Company Number: JP-SANOFI-AVENTIS-2011SA085217

PATIENT
  Age: 65 Year
  Sex: Male
  Weight: 46 kg

DRUGS (14)
  1. OXALIPLATIN [Suspect]
     Indication: RECTAL CANCER
     Dosage: DOSE:120MG/BODY
     Route: 041
     Dates: start: 20111213, end: 20111213
  2. FLUOROURACIL [Suspect]
     Indication: RECTAL CANCER
     Dosage: DOSE:550MG/BODY
     Route: 040
     Dates: start: 20111213, end: 20111213
  3. FLUOROURACIL [Suspect]
     Dosage: DOSE:3550 MG/BODYD1-2
     Route: 041
     Dates: start: 20111213, end: 20111213
  4. THERAPEUTIC RADIOPHARMACEUTICALS [Concomitant]
     Dates: end: 20111214
  5. GRANISETRON [Concomitant]
     Indication: PREMEDICATION
     Route: 041
     Dates: start: 20111213, end: 20111213
  6. THERAPEUTIC RADIOPHARMACEUTICALS [Concomitant]
     Dates: start: 20111219
  7. DEXAMETHASONE SODIUM PHOSPHATE [Concomitant]
     Indication: PREMEDICATION
     Route: 041
     Dates: start: 20111213, end: 20111213
  8. CALCIUM CARBONATE [Concomitant]
     Indication: PREMEDICATION
     Route: 041
     Dates: start: 20111213, end: 20111213
  9. MAGNESIUM SULFATE [Concomitant]
     Indication: PREMEDICATION
     Route: 041
     Dates: start: 20111213, end: 20111213
  10. TAMSULOSIN HCL [Concomitant]
     Indication: DYSURIA
     Route: 048
     Dates: start: 20100601
  11. LEVOLEUCOVORIN CALCIUM [Concomitant]
     Indication: RECTAL CANCER
     Route: 041
     Dates: start: 20111213, end: 20111213
  12. FLUOROURACIL [Suspect]
     Dosage: ABOUT 90%
     Route: 041
     Dates: start: 20111215, end: 20111215
  13. D-MANNITOL [Concomitant]
     Indication: BRAIN OEDEMA
     Route: 041
     Dates: start: 20111215, end: 20111215
  14. FRESH FROZEN PLASMA [Concomitant]
     Indication: COAGULOPATHY
     Route: 041
     Dates: start: 20111215, end: 20111215

REACTIONS (1)
  - HYPERAMMONAEMIA [None]
